FAERS Safety Report 6912132-4 (Version None)
Quarter: 2010Q3

REPORT INFORMATION
  Report Type: 
  Country: None (occurrence: None)
  Receive Date: 20100806
  Receipt Date: 20071220
  Transmission Date: 20110219
  Serious: No
  Sender: FDA-Public Use
  Company Number: US-PFIZER INC-2007107998

PATIENT
  Sex: Female
  Weight: 75 kg

DRUGS (3)
  1. DETROL LA [Suspect]
     Indication: HYPERTONIC BLADDER
     Dates: start: 20071215
  2. FLAGYL [Suspect]
     Indication: CERVICITIS
  3. GRAPEFRUIT JUICE [Suspect]
     Dates: start: 20071215

REACTIONS (5)
  - HYPERCHLORHYDRIA [None]
  - HYPERSENSITIVITY [None]
  - HYPERTONIC BLADDER [None]
  - MALAISE [None]
  - RASH [None]
